FAERS Safety Report 22381798 (Version 10)
Quarter: 2024Q3

REPORT INFORMATION
  Report Type: Spontaneous
  Country: FR (occurrence: FR)
  Receive Date: 20230530
  Receipt Date: 20240726
  Transmission Date: 20241017
  Serious: Yes (Hospitalization, Disabling, Other)
  Sender: BIOGEN
  Company Number: FR-1577272925-E2011-02535

PATIENT
  Age: 16 Year
  Sex: Female
  Weight: 67 kg

DRUGS (1)
  1. TYSABRI [Suspect]
     Active Substance: NATALIZUMAB
     Indication: Product used for unknown indication
     Dosage: UNK
     Route: 050
     Dates: start: 20111006, end: 201307

REACTIONS (25)
  - Coma [Recovered/Resolved]
  - Gait disturbance [Unknown]
  - Optic neuritis [Recovered/Resolved]
  - Paralysis [Unknown]
  - Acute disseminated encephalomyelitis [Recovered/Resolved]
  - Cerebrovascular accident [Unknown]
  - Myelin oligodendrocyte glycoprotein antibody-associated disease [Unknown]
  - Gait inability [Unknown]
  - Social avoidant behaviour [Recovered/Resolved]
  - Loss of consciousness [Unknown]
  - Acute disseminated encephalomyelitis [Unknown]
  - Cerebrovascular accident [Recovered/Resolved]
  - Fatigue [Not Recovered/Not Resolved]
  - Asthenia [Not Recovered/Not Resolved]
  - Maternal exposure before pregnancy [Unknown]
  - Dysgraphia [Unknown]
  - Depression [Unknown]
  - Therapeutic product effect incomplete [Unknown]
  - Off label use [Unknown]
  - Adverse drug reaction [Unknown]
  - Illness [Unknown]
  - Disease progression [Unknown]
  - Fall [Unknown]
  - Blood pressure increased [Unknown]
  - JC polyomavirus test positive [Unknown]

NARRATIVE: CASE EVENT DATE: 20110101
